FAERS Safety Report 21287041 (Version 2)
Quarter: 2025Q2

REPORT INFORMATION
  Report Type: Report from Study
  Country: ZA (occurrence: ZA)
  Receive Date: 20220902
  Receipt Date: 20250409
  Transmission Date: 20250717
  Serious: Yes (Other)
  Sender: ROCHE
  Company Number: ZA-ROCHE-3167081

PATIENT
  Sex: Male

DRUGS (1)
  1. OCREVUS [Suspect]
     Active Substance: OCRELIZUMAB
     Indication: Primary progressive multiple sclerosis
     Dosage: 600MG EVERY 6 MONTHS
     Route: 042
     Dates: start: 20220407

REACTIONS (12)
  - Fall [Unknown]
  - Back pain [Unknown]
  - Pain in extremity [Unknown]
  - Facet joint syndrome [Unknown]
  - Spinal cord oedema [Unknown]
  - Anterior cord syndrome [Unknown]
  - Lumbosacral radiculopathy [Unknown]
  - Intervertebral disc protrusion [Unknown]
  - Intervertebral disc protrusion [Unknown]
  - Conus medullaris syndrome [Unknown]
  - Visual acuity reduced [Unknown]
  - Radiculopathy [Unknown]
